FAERS Safety Report 6122396-5 (Version None)
Quarter: 2009Q1

REPORT INFORMATION
  Report Type: 
  Country: None (occurrence: None)
  Receive Date: 20090318
  Receipt Date: 20090210
  Transmission Date: 20090719
  Serious: No
  Sender: FDA-Public Use
  Company Number: US-ASTRAZENECA-2009UW03892

PATIENT
  Age: 66 Year
  Sex: Male
  Weight: 99.8 kg

DRUGS (4)
  1. SYMBICORT [Suspect]
     Indication: ASTHMA
     Route: 055
  2. SYMBICORT [Suspect]
     Dosage: 1 PUFF DAILY
     Route: 055
  3. PROAIR HFA [Concomitant]
  4. SPIRIVA [Concomitant]

REACTIONS (3)
  - APHONIA [None]
  - DYSPHONIA [None]
  - VOCAL CORD DISORDER [None]
